FAERS Safety Report 4705742-6 (Version None)
Quarter: 2005Q2

REPORT INFORMATION
  Report Type: 
  Country: None (occurrence: None)
  Receive Date: 20050629
  Receipt Date: 20050622
  Transmission Date: 20051028
  Serious: Yes (Disabling)
  Sender: FDA-Public Use
  Company Number: 2005079297

PATIENT
  Age: 57 Year
  Sex: Male
  Weight: 76.6579 kg

DRUGS (1)
  1. LIPITOR [Suspect]
     Indication: BLOOD CHOLESTEROL INCREASED
     Dosage: 20 MG (20 MG, 1 IN 1 D), ORAL
     Route: 048
     Dates: start: 20040101

REACTIONS (3)
  - EPICONDYLITIS [None]
  - MUSCLE HAEMORRHAGE [None]
  - TENDON RUPTURE [None]
